FAERS Safety Report 5048605-1 (Version None)
Quarter: 2006Q2

REPORT INFORMATION
  Report Type: 
  Country: None (occurrence: None)
  Receive Date: 20060629
  Receipt Date: 20060616
  Transmission Date: 20061013
  Serious: Yes (Death)
  Sender: FDA-Public Use
  Company Number: 2006BH011334

PATIENT
  Age: 15 Year
  Sex: 0

DRUGS (1)
  1. TISSUCOL/ TISSEEL KIT STIM4 (FIBRIN SEALANT) [Suspect]
     Indication: SURGERY

REACTIONS (3)
  - ANAPHYLACTIC REACTION [None]
  - DRUG HYPERSENSITIVITY [None]
  - MENINGEAL REPAIR [None]
